FAERS Safety Report 5144806-2 (Version None)
Quarter: 2006Q4

REPORT INFORMATION
  Report Type: 
  Country: None (occurrence: None)
  Receive Date: 20061103
  Receipt Date: 20061103
  Transmission Date: 20070319
  Serious: Yes (Hospitalization)
  Sender: FDA-Public Use
  Company Number: None

PATIENT
  Age: 63 Year
  Sex: Male
  Weight: 78.4723 kg

DRUGS (9)
  1. IRINOTECAN HCL [Suspect]
     Indication: COLON CANCER
     Dosage: 150MG/M2 Q 2 WKS IV
     Route: 042
     Dates: start: 20061005, end: 20061019
  2. CETUXIMAB [Suspect]
     Indication: COLON CANCER
     Dosage: 500MG/M2 Q2 WKS IV
     Route: 042
     Dates: start: 20061005
  3. FLUOXETINE [Concomitant]
  4. ASPIRIN [Concomitant]
  5. ZYPREXA [Concomitant]
  6. COMPAZINE [Concomitant]
  7. SENOKOT [Concomitant]
  8. IMODIUM [Concomitant]
  9. DOXYCYCLINE [Concomitant]

REACTIONS (14)
  - ABDOMINAL DISTENSION [None]
  - BACTERAEMIA [None]
  - BLOOD PRESSURE INCREASED [None]
  - BOWEL SOUNDS ABNORMAL [None]
  - CATHETER RELATED INFECTION [None]
  - DEHYDRATION [None]
  - FAECALOMA [None]
  - INTESTINAL FUNCTIONAL DISORDER [None]
  - INTESTINAL OBSTRUCTION [None]
  - NAUSEA [None]
  - RASH [None]
  - RENAL FAILURE ACUTE [None]
  - RESPIRATORY RATE INCREASED [None]
  - VOMITING [None]
